FAERS Safety Report 4373071-9 (Version None)
Quarter: 2004Q2

REPORT INFORMATION
  Report Type: 
  Country: None (occurrence: None)
  Receive Date: 20040603
  Receipt Date: 20030917
  Transmission Date: 20050107
  Serious: Yes (Other)
  Sender: FDA-Public Use
  Company Number: US_0405103159

PATIENT
  Age: 73 Year
  Sex: Male
  Weight: 62 kg

DRUGS (15)
  1. PEMETREXED [Suspect]
     Indication: MESOTHELIOMA
     Dosage: 880 MG
     Dates: start: 20030716
  2. CISPLATIN [Suspect]
     Indication: MESOTHELIOMA
     Dosage: 132 MG
     Dates: start: 20030716
  3. DURAGESIC [Concomitant]
  4. DILAUDID [Concomitant]
  5. RESTORIL [Concomitant]
  6. PREVACID [Concomitant]
  7. REGLAN [Concomitant]
  8. MEGACE [Concomitant]
  9. FERROUS SULFATE TAB [Concomitant]
  10. FOLIC ACID [Concomitant]
  11. VITAMIN B-12 [Concomitant]
  12. ULTRAM [Concomitant]
  13. COLACE (DOCUSATE SODIUM) [Concomitant]
  14. SENNA [Concomitant]
  15. MILK OF MAGNESIA TAB [Concomitant]

REACTIONS (12)
  - ANOREXIA [None]
  - ARTHRALGIA [None]
  - ELECTROCARDIOGRAM QT PROLONGED [None]
  - FATIGUE [None]
  - HAEMOGLOBIN DECREASED [None]
  - OEDEMA PERIPHERAL [None]
  - PERICARDITIS [None]
  - PULMONARY OEDEMA [None]
  - SUPRAVENTRICULAR EXTRASYSTOLES [None]
  - TRICUSPID VALVE INCOMPETENCE [None]
  - VENTRICULAR EXTRASYSTOLES [None]
  - VENTRICULAR WALL THICKENING [None]
